FAERS Safety Report 7820403-2 (Version None)
Quarter: 2011Q4

REPORT INFORMATION
  Report Type: 
  Country: None (occurrence: None)
  Receive Date: 20111018
  Receipt Date: 20111013
  Transmission Date: 20120403
  Serious: Yes (Other)
  Sender: FDA-Public Use
  Company Number: JP-BRACCO-005210

PATIENT
  Sex: Male
  Weight: 70 kg

DRUGS (5)
  1. IODINE [Suspect]
     Indication: RADIOISOTOPE SCAN
     Dosage: DIAGNOSTIC DOSE
  2. IOMERON-150 [Suspect]
     Indication: CENTRAL VENOUS CATHETERISATION
     Route: 042
  3. IODINE [Suspect]
     Dosage: HIGH DOSE
     Route: 042
     Dates: start: 20100216
  4. IOPAMIDOL [Suspect]
     Indication: COMPUTERISED TOMOGRAM
     Dosage: ADMINISTERED AT 12:30
     Route: 042
     Dates: start: 20100222
  5. IODINE [Suspect]
     Indication: RADIOTHERAPY
     Dosage: DIAGNOSTIC DOSE

REACTIONS (1)
  - HYPERTENSIVE CRISIS [None]
